FAERS Safety Report 7795677-7 (Version None)
Quarter: 2011Q4

REPORT INFORMATION
  Report Type: 
  Country: None (occurrence: None)
  Receive Date: 20111004
  Receipt Date: 20111003
  Transmission Date: 20120403
  Serious: Yes (Hospitalization)
  Sender: FDA-Public Use
  Company Number: US-GLAXOSMITHKLINE-B0752303A

PATIENT
  Age: 77 Year
  Sex: Male

DRUGS (2)
  1. LASIX [Concomitant]
  2. AVANDIA [Suspect]
     Indication: DIABETES MELLITUS
     Dosage: 8MG PER DAY
     Route: 048
     Dates: start: 20050715

REACTIONS (5)
  - FLUID RETENTION [None]
  - CARDIAC FAILURE CONGESTIVE [None]
  - LUNG DISORDER [None]
  - PNEUMONIA BACTERIAL [None]
  - INFECTION [None]
